FAERS Safety Report 10319612 (Version 2)
Quarter: 2014Q3

REPORT INFORMATION
  Report Type: Other
  Country: US (occurrence: US)
  Receive Date: 20140719
  Receipt Date: 20140719
  Transmission Date: 20150326
  Serious: Yes (Hospitalization, Other)
  Sender: FDA-Public Use
  Company Number: US-GSKPPD-2014GSK002759

PATIENT
  Age: 68 Year
  Sex: Male

DRUGS (9)
  1. ZESTRIL [Concomitant]
     Active Substance: LISINOPRIL
     Dosage: QD
  2. CRESTOR [Concomitant]
     Active Substance: ROSUVASTATIN CALCIUM
     Dosage: QD
  3. DAYPRO [Concomitant]
     Active Substance: OXAPROZIN
  4. AVANDIA [Suspect]
     Active Substance: ROSIGLITAZONE MALEATE
     Indication: DIABETES MELLITUS
     Route: 048
     Dates: start: 20051206, end: 20100428
  5. ASPIRIN. [Concomitant]
     Active Substance: ASPIRIN
  6. LOPRESSOR [Concomitant]
     Active Substance: METOPROLOL TARTRATE
     Dosage: BID
  7. LOPID [Concomitant]
     Active Substance: GEMFIBROZIL
     Dosage: QD
  8. XANAX [Concomitant]
     Active Substance: ALPRAZOLAM
  9. ZETIA [Concomitant]
     Active Substance: EZETIMIBE
     Dosage: QD

REACTIONS (1)
  - Cardiac failure congestive [Recovered/Resolved]

NARRATIVE: CASE EVENT DATE: 20100323
